FAERS Safety Report 7896072-2 (Version None)
Quarter: 2011Q4

REPORT INFORMATION
  Report Type: 
  Country: None (occurrence: None)
  Receive Date: 20111102
  Receipt Date: 20111021
  Transmission Date: 20120403
  Serious: Yes (Other)
  Sender: FDA-Public Use
  Company Number: JPI-P-017820

PATIENT
  Age: 60 Year
  Sex: Female
  Weight: 66.6788 kg

DRUGS (4)
  1. XYREM [Suspect]
     Dosage: ORAL; 9 GM (4.5 GM, 2 IN 1 D), ORAL
     Route: 048
     Dates: start: 20031001
  2. AMITRIPTYLINE HCL [Concomitant]
  3. FEXOFENADINE HCL [Concomitant]
  4. SERTRALINE HYDROCHLORIDE [Concomitant]

REACTIONS (4)
  - FOOT FRACTURE [None]
  - FALL [None]
  - ROTATOR CUFF SYNDROME [None]
  - MUSCULOSKELETAL PAIN [None]
